FAERS Safety Report 10829972 (Version 1)
Quarter: 2015Q1

REPORT INFORMATION
  Report Type: Report from Study
  Country: US (occurrence: US)
  Receive Date: 20150219
  Receipt Date: 20150219
  Transmission Date: 20150721
  Serious: No
  Sender: FDA-Public Use
  Company Number: US-ABBVIE-14P-163-1188118-00

PATIENT
  Age: 65 Year
  Sex: Female

DRUGS (3)
  1. HUMIRA [Suspect]
     Active Substance: ADALIMUMAB
     Indication: CROHN^S DISEASE
     Dates: start: 20131217, end: 20131217
  2. HUMIRA [Suspect]
     Active Substance: ADALIMUMAB
     Dates: start: 20131231, end: 20131231
  3. HUMIRA [Suspect]
     Active Substance: ADALIMUMAB

REACTIONS (2)
  - Arthralgia [Recovering/Resolving]
  - Nausea [Recovering/Resolving]

NARRATIVE: CASE EVENT DATE: 20131217
